FAERS Safety Report 6251989-X (Version None)
Quarter: 2009Q2

REPORT INFORMATION
  Report Type: 
  Country: None (occurrence: None)
  Receive Date: 20090630
  Receipt Date: 20040316
  Transmission Date: 20091009
  Serious: Yes (Hospitalization)
  Sender: FDA-Public Use
  Company Number: US-ROCHE-638322

PATIENT
  Sex: Male

DRUGS (10)
  1. ENFUVIRTIDE [Suspect]
     Route: 065
     Dates: start: 20030605, end: 20071220
  2. VIREAD [Concomitant]
     Dosage: FREQUENCY: QD
     Dates: start: 20011129, end: 20040506
  3. VIDEX EC [Concomitant]
     Dosage: FREQUENCY: QD
     Dates: start: 20021231, end: 20040506
  4. REYATAZ [Concomitant]
     Dosage: FREQUENCY: QD
     Dates: start: 20030325, end: 20080814
  5. NORVIR [Concomitant]
     Dates: start: 20031114, end: 20040326
  6. NORVIR [Concomitant]
     Dosage: FREQUENCY: QD
     Dates: start: 20040702, end: 20080814
  7. TRIZIVIR [Concomitant]
     Dates: end: 20040326
  8. BACTRIM DS [Concomitant]
     Dates: start: 19900716, end: 20071220
  9. DIFLUCAN [Concomitant]
     Dates: start: 20020109, end: 20040101
  10. VALTREX [Concomitant]
     Dates: start: 20021231, end: 20080814

REACTIONS (7)
  - DEHYDRATION [None]
  - GASTRITIS [None]
  - GASTROOESOPHAGEAL REFLUX DISEASE [None]
  - HEPATIC FAILURE [None]
  - HIATUS HERNIA [None]
  - VOMITING [None]
  - WEIGHT DECREASED [None]
